FAERS Safety Report 19536727 (Version 1)
Quarter: 2021Q3

REPORT INFORMATION
  Report Type: Spontaneous
  Country: US (occurrence: US)
  Receive Date: 20210713
  Receipt Date: 20210713
  Transmission Date: 20211014
  Serious: Yes (Other)
  Sender: FDA-Public Use
  Company Number: None

PATIENT
  Sex: Male

DRUGS (4)
  1. ELIQUIS [Concomitant]
     Active Substance: APIXABAN
  2. CAPECITABINE 500MG TAB [Suspect]
     Active Substance: CAPECITABINE
     Indication: NEOPLASM MALIGNANT
     Dosage: OTHER DOSE:4 500 MG TAB;OTHER FREQUENCY:BID FOR 14 DAYS;?
     Route: 048
     Dates: start: 20201215
  3. STOALOL HCL [Concomitant]
  4. POT CLO MICRO [Concomitant]

REACTIONS (1)
  - Haemorrhage [None]
